FAERS Safety Report 18558829 (Version 1)
Quarter: 2020Q4

REPORT INFORMATION
  Report Type: Spontaneous
  Country: US (occurrence: US)
  Receive Date: 20201130
  Receipt Date: 20201130
  Transmission Date: 20210114
  Serious: Yes (Hospitalization, Other)
  Sender: FDA-Public Use
  Company Number: US-009507513-2011USA015840

PATIENT
  Age: 48 Year
  Weight: 86.2 kg

DRUGS (16)
  1. SEROQUEL [Suspect]
     Active Substance: QUETIAPINE FUMARATE
     Indication: MENTAL DISORDER
     Dosage: UNKNOWN
     Route: 048
  2. SEROQUEL [Suspect]
     Active Substance: QUETIAPINE FUMARATE
     Indication: AGGRESSION
  3. XANAX [Concomitant]
     Active Substance: ALPRAZOLAM
     Indication: GASTROOESOPHAGEAL REFLUX DISEASE
  4. PRINIVIL [Suspect]
     Active Substance: LISINOPRIL
     Indication: BLOOD PRESSURE ABNORMAL
     Route: 048
  5. RISPERIDONE. [Suspect]
     Active Substance: RISPERIDONE
     Dosage: UNK
     Route: 065
  6. ACETAMINOPHEN (+) HYDROCODONE BITARTRATE [Concomitant]
     Active Substance: ACETAMINOPHEN\HYDROCODONE BITARTRATE
     Indication: PAIN IN EXTREMITY
  7. METFORMIN [Concomitant]
     Active Substance: METFORMIN HYDROCHLORIDE
     Indication: DIABETES MELLITUS
  8. LYRICA [Concomitant]
     Active Substance: PREGABALIN
     Indication: NERVE INJURY
     Dosage: DAILY
  9. ZOFRAN [Concomitant]
     Active Substance: ONDANSETRON HYDROCHLORIDE
     Indication: VOMITING
  10. MELATONIN [Concomitant]
     Active Substance: MELATONIN
     Indication: SLEEP DISORDER
  11. SEROQUEL [Suspect]
     Active Substance: QUETIAPINE FUMARATE
     Indication: AGGRESSION
  12. SEROQUEL [Suspect]
     Active Substance: QUETIAPINE FUMARATE
     Indication: MENTAL DISORDER
     Dosage: 600 MILLIGRAM
     Route: 048
     Dates: start: 2009, end: 2012
  13. ACETAMINOPHEN (+) HYDROCODONE BITARTRATE [Concomitant]
     Active Substance: ACETAMINOPHEN\HYDROCODONE BITARTRATE
     Indication: HEADACHE
  14. LUNESTA [Concomitant]
     Active Substance: ESZOPICLONE
     Indication: SLEEP DISORDER
  15. LYRICA [Concomitant]
     Active Substance: PREGABALIN
     Indication: NEUROPATHY PERIPHERAL
     Dosage: UNK
  16. HYDROXINE [Concomitant]
     Active Substance: HYDROXYZINE HYDROCHLORIDE

REACTIONS (37)
  - Gastrointestinal injury [Unknown]
  - Infection [Unknown]
  - Nausea [Unknown]
  - Face injury [Unknown]
  - Type 1 diabetes mellitus [Unknown]
  - Peripheral coldness [Unknown]
  - Abdominal pain upper [Unknown]
  - Skin reaction [Unknown]
  - Hypoaesthesia [Unknown]
  - Pain [Unknown]
  - Loss of consciousness [Unknown]
  - Hernia [Unknown]
  - Weight increased [Unknown]
  - Gait inability [Unknown]
  - Blood glucose increased [Unknown]
  - Product dose omission issue [Unknown]
  - Hypertension [Not Recovered/Not Resolved]
  - Rash [Unknown]
  - Haematochezia [Unknown]
  - Seizure [Unknown]
  - Quality of life decreased [Unknown]
  - Anger [Unknown]
  - Headache [Unknown]
  - Drug hypersensitivity [Unknown]
  - Insomnia [Unknown]
  - Weight fluctuation [Unknown]
  - Respiratory disorder [Unknown]
  - Malaise [Unknown]
  - Impaired healing [Unknown]
  - Post procedural complication [Unknown]
  - Vomiting [Unknown]
  - Chest injury [Unknown]
  - Haematemesis [Unknown]
  - Intentional product misuse [Unknown]
  - Neuropathy peripheral [Not Recovered/Not Resolved]
  - Pruritus [Unknown]
  - Thermal burn [Unknown]

NARRATIVE: CASE EVENT DATE: 2008
